FAERS Safety Report 5759519-3 (Version None)
Quarter: 2008Q2

REPORT INFORMATION
  Report Type: 
  Country: None (occurrence: None)
  Receive Date: 20080604
  Receipt Date: 20080604
  Transmission Date: 20081010
  Serious: Yes (Other)
  Sender: FDA-Public Use
  Company Number: None

PATIENT
  Sex: Female
  Weight: 68.0396 kg

DRUGS (1)
  1. DICLOXACILLIN [Suspect]
     Indication: INFECTION
     Dosage: ONE CAPSULE TWICE DAILY MOUTH
     Route: 048
     Dates: start: 20080218, end: 20080221

REACTIONS (2)
  - AGGRESSION [None]
  - DIARRHOEA HAEMORRHAGIC [None]
